FAERS Safety Report 13180118 (Version 1)
Quarter: 2017Q1

REPORT INFORMATION
  Report Type: Spontaneous
  Country: GR (occurrence: GR)
  Receive Date: 20170202
  Receipt Date: 20170202
  Transmission Date: 20170428
  Serious: Yes (Other)
  Sender: FDA-Public Use
  Company Number: GR-TELIGENT, INC-IGIL20170024

PATIENT
  Age: 56 Year
  Sex: Female

DRUGS (10)
  1. CLINDAMYCIN. [Suspect]
     Active Substance: CLINDAMYCIN
     Indication: OEDEMA
  2. ZINACEF [Suspect]
     Active Substance: CEFUROXIME SODIUM
     Indication: OEDEMA
  3. CLINDAMYCIN. [Suspect]
     Active Substance: CLINDAMYCIN
     Indication: SKIN NECROSIS
     Route: 030
  4. ZINACEF [Suspect]
     Active Substance: CEFUROXIME SODIUM
     Indication: SKIN NECROSIS
     Route: 030
  5. ZINACEF [Suspect]
     Active Substance: CEFUROXIME SODIUM
     Indication: SKIN LESION
  6. ZINACEF [Suspect]
     Active Substance: CEFUROXIME SODIUM
     Indication: ERYTHEMA
  7. ZINACEF [Suspect]
     Active Substance: CEFUROXIME SODIUM
     Indication: ARTHROPOD BITE
  8. CLINDAMYCIN. [Suspect]
     Active Substance: CLINDAMYCIN
     Indication: SKIN LESION
  9. CLINDAMYCIN. [Suspect]
     Active Substance: CLINDAMYCIN
     Indication: ERYTHEMA
  10. CLINDAMYCIN. [Suspect]
     Active Substance: CLINDAMYCIN
     Indication: ARTHROPOD BITE

REACTIONS (7)
  - Rash pustular [Recovered/Resolved]
  - Pruritus [Recovered/Resolved]
  - Acute generalised exanthematous pustulosis [Recovered/Resolved]
  - Eosinophilia [Recovered/Resolved]
  - Skin burning sensation [Recovered/Resolved]
  - Pyrexia [Recovered/Resolved]
  - Leukocytosis [Recovered/Resolved]
